FAERS Safety Report 7279467-X (Version None)
Quarter: 2011Q1

REPORT INFORMATION
  Report Type: 
  Country: None (occurrence: None)
  Receive Date: 20110208
  Receipt Date: 20110124
  Transmission Date: 20110831
  Serious: No
  Sender: FDA-Public Use
  Company Number: US-BIOGENIDEC-2010BI011872

PATIENT
  Age: 48 Year
  Sex: Female

DRUGS (1)
  1. TYSABRI [Suspect]
     Indication: MULTIPLE SCLEROSIS
     Route: 042
     Dates: start: 20090330

REACTIONS (8)
  - WEIGHT INCREASED [None]
  - SOMNOLENCE [None]
  - MENTAL IMPAIRMENT [None]
  - COMMUNICATION DISORDER [None]
  - DECREASED IMMUNE RESPONSIVENESS [None]
  - INFLUENZA [None]
  - FATIGUE [None]
  - HYPERSOMNIA [None]
